FAERS Safety Report 9832911 (Version 2)
Quarter: 2014Q1

REPORT INFORMATION
  Report Type: Spontaneous
  Country: US (occurrence: US)
  Receive Date: 20140121
  Receipt Date: 20140127
  Transmission Date: 20141002
  Serious: Yes (Death, Hospitalization, Other)
  Sender: FDA-Public Use
  Company Number: US-B.I. PHARMACEUTICALS,INC./RIDGEFIELD-2014-BI-02453BP

PATIENT
  Age: 72 Year
  Sex: Male

DRUGS (1)
  1. AGGRENOX [Suspect]
     Dosage: STRENGTH: 25 MG / 200 MG; DAILY DOSE: 50MG/400MG
     Route: 048
     Dates: start: 200902

REACTIONS (5)
  - Multi-organ failure [Fatal]
  - Renal disorder [Fatal]
  - Lung disorder [Fatal]
  - Pulmonary oedema [Unknown]
  - Lung infection [Unknown]
